FAERS Safety Report 22587387 (Version 1)
Quarter: 2023Q2

REPORT INFORMATION
  Report Type: Spontaneous
  Country: US (occurrence: US)
  Receive Date: 20230612
  Receipt Date: 20230612
  Transmission Date: 20230722
  Serious: Yes (Hospitalization, Other)
  Sender: FDA-Public Use
  Company Number: None

PATIENT
  Age: 65 Year
  Sex: Male

DRUGS (5)
  1. ACETAMINOPHEN [Concomitant]
     Active Substance: ACETAMINOPHEN
  2. IRON [Concomitant]
     Active Substance: IRON
  3. HYDROCHLOROTHIAZIDE\TRIAMTERENE [Suspect]
     Active Substance: HYDROCHLOROTHIAZIDE\TRIAMTERENE
  4. ATORVASTATIN [Suspect]
     Active Substance: ATORVASTATIN
  5. OMEPRAZOLE [Suspect]
     Active Substance: OMEPRAZOLE

REACTIONS (1)
  - Vanishing bile duct syndrome [Recovering/Resolving]
